FAERS Safety Report 16467078 (Version 2)
Quarter: 2019Q3

REPORT INFORMATION
  Report Type: Spontaneous
  Country: JP (occurrence: JP)
  Receive Date: 20190624
  Receipt Date: 20190711
  Transmission Date: 20191004
  Serious: Yes (Hospitalization, Other)
  Sender: FDA-Public Use
  Company Number: JP-SA-2019SA165623

PATIENT
  Age: 74 Year
  Sex: Female

DRUGS (2)
  1. KEVZARA [Suspect]
     Active Substance: SARILUMAB
     Indication: RHEUMATOID ARTHRITIS
     Dosage: 200 MG
     Route: 058
     Dates: start: 20190607
  2. METHYLPREDNISOLONE. [Suspect]
     Active Substance: METHYLPREDNISOLONE
     Indication: PRODUCT USED FOR UNKNOWN INDICATION
     Dosage: 28 MG
     Route: 048

REACTIONS (4)
  - Colitis ischaemic [Recovered/Resolved]
  - Thrombosis [Recovered/Resolved]
  - Haematochezia [Recovered/Resolved]
  - Gastrointestinal tract mucosal discolouration [Recovered/Resolved]

NARRATIVE: CASE EVENT DATE: 201906
